FAERS Safety Report 5564702-6 (Version None)
Quarter: 2007Q4

REPORT INFORMATION
  Report Type: 
  Country: None (occurrence: None)
  Receive Date: 20071218
  Receipt Date: 20071205
  Transmission Date: 20080405
  Serious: Yes (Hospitalization)
  Sender: FDA-Public Use
  Company Number: US-ELI_LILLY_AND_COMPANY-US200711001127

PATIENT
  Sex: Female

DRUGS (18)
  1. FORTEO [Suspect]
     Indication: OSTEOPOROSIS
     Dosage: UNK, UNK
     Dates: start: 20070906, end: 20071028
  2. FORTEO [Suspect]
     Dates: start: 20071029, end: 20071030
  3. FORTEO [Suspect]
     Dosage: UNK, UNK
     Dates: start: 20071101, end: 20071104
  4. METOPROLOL [Concomitant]
     Dosage: 50 MG, UNK
  5. POTASSIUM CHLORIDE [Concomitant]
  6. FUROSEMIDE [Concomitant]
  7. LISINOPRIL [Concomitant]
  8. OXYBUTYNIN CHLORIDE [Concomitant]
  9. DILTIAZEM [Concomitant]
  10. LEVOXYL [Concomitant]
  11. WARFARIN SODIUM [Concomitant]
  12. MIRTAZAPINE [Concomitant]
  13. GABAPENTIN [Concomitant]
  14. METHYLPHENIDATE HCL [Concomitant]
  15. AMBIEN [Concomitant]
  16. TYLENOL                                 /SCH/ [Concomitant]
     Dosage: 500 MG, UNK
  17. CALCIUM D [Concomitant]
  18. AMOXICILLIN [Concomitant]
     Indication: ANTIBIOTIC PROPHYLAXIS
     Dosage: UNK, AS NEEDED

REACTIONS (4)
  - DIARRHOEA [None]
  - FEELING ABNORMAL [None]
  - MALAISE [None]
  - NAUSEA [None]
